FAERS Safety Report 6978045-7 (Version None)
Quarter: 2010Q3

REPORT INFORMATION
  Report Type: 
  Country: None (occurrence: None)
  Receive Date: 20100913
  Receipt Date: 20100831
  Transmission Date: 20110219
  Serious: Yes (Other)
  Sender: FDA-Public Use
  Company Number: ZA-JNJFOC-20100901027

PATIENT
  Sex: Female
  Weight: 61 kg

DRUGS (11)
  1. REVELLEX [Suspect]
     Indication: RHEUMATOID ARTHRITIS
     Route: 042
  2. REVELLEX [Suspect]
     Route: 042
  3. REVELLEX [Suspect]
     Route: 042
  4. REVELLEX [Suspect]
     Route: 042
  5. SALAZOPYRIN [Concomitant]
  6. FOLIC ACID [Concomitant]
  7. PREDNISONE [Concomitant]
  8. CELEBREX [Concomitant]
  9. DISPRIN CV [Concomitant]
  10. SOLU-CORTEF [Concomitant]
     Indication: PREMEDICATION
  11. ANTIHISTAMINE [Concomitant]
     Indication: PREMEDICATION

REACTIONS (2)
  - RECTAL ABSCESS [None]
  - URINARY RETENTION [None]
